FAERS Safety Report 4989144-3 (Version None)
Quarter: 2006Q2

REPORT INFORMATION
  Report Type: 
  Country: None (occurrence: None)
  Receive Date: 20060425
  Receipt Date: 20060413
  Transmission Date: 20061013
  Serious: Yes (Other)
  Sender: FDA-Public Use
  Company Number: 2006051088

PATIENT
  Age: 44 Year
  Sex: Female
  Weight: 47.1741 kg

DRUGS (2)
  1. CELEBREX [Suspect]
     Indication: RHEUMATOID ARTHRITIS
     Dosage: 400 MG (200 MG, 2 IN 1 D)
     Dates: end: 20050101
  2. NABUMETONE [Suspect]
     Indication: ARTHRITIS

REACTIONS (6)
  - BLOOD GLUCOSE INCREASED [None]
  - CARDIOMEGALY [None]
  - DRUG INEFFECTIVE [None]
  - HEART RATE INCREASED [None]
  - HYPERTENSION [None]
  - RHEUMATOID LUNG [None]
